FAERS Safety Report 9854731 (Version 1)
Quarter: 2014Q1

REPORT INFORMATION
  Report Type: Other
  Country: GB (occurrence: GB)
  Receive Date: 20140130
  Receipt Date: 20140130
  Transmission Date: 20141002
  Serious: Yes (Other)
  Sender: FDA-Public Use
  Company Number: GB-GLENMARK GENERICS INC.-2014GMK008241

PATIENT
  Age: 40 Year
  Sex: Male
  Weight: 67.4 kg

DRUGS (8)
  1. GABAPENTIN [Suspect]
     Indication: NEURALGIA
     Dosage: 1200 MG, OD
     Route: 048
  2. GABAPENTIN [Suspect]
     Dosage: 500 MG, TID
     Route: 048
  3. CETIRIZINE HYDROCHLORIDE [Concomitant]
     Indication: PRODUCT USED FOR UNKNOWN INDICATION
     Dosage: UNK
  4. CO-CODAMOL [Concomitant]
     Indication: PRODUCT USED FOR UNKNOWN INDICATION
     Dosage: UNK
  5. DARUNAVIR [Concomitant]
     Indication: PRODUCT USED FOR UNKNOWN INDICATION
     Dosage: UNK
  6. RITONAVIR [Concomitant]
     Indication: PRODUCT USED FOR UNKNOWN INDICATION
     Dosage: UNK
  7. SEPTRIN [Concomitant]
     Indication: PRODUCT USED FOR UNKNOWN INDICATION
     Dosage: UNK
  8. TRUVADA [Concomitant]
     Indication: PRODUCT USED FOR UNKNOWN INDICATION
     Dosage: UNK

REACTIONS (11)
  - Compulsions [Unknown]
  - Feeling abnormal [Unknown]
  - Hallucination, synaesthetic [Unknown]
  - Feeling hot [Unknown]
  - Muscle spasms [Recovered/Resolved]
  - Trance [Unknown]
  - Speech disorder [Unknown]
  - Pain [Unknown]
  - Myoclonus [Unknown]
  - Hallucination [Unknown]
  - Somnolence [Unknown]
